FAERS Safety Report 10650590 (Version 1)
Quarter: 2014Q4

REPORT INFORMATION
  Report Type: Spontaneous
  Country: US (occurrence: US)
  Receive Date: 20141214
  Receipt Date: 20141214
  Transmission Date: 20150529
  Serious: No
  Sender: FDA-Public Use
  Company Number: US-BAUSCH-SYM-2014-23075

PATIENT
  Age: 22 Year
  Sex: Male
  Weight: 86.26 kg

DRUGS (5)
  1. XENAZINE [Suspect]
     Active Substance: TETRABENAZINE
     Dosage: ONE TABLET IN THE MORNING, AND TWO TABLETS IN THE EVENING
     Route: 048
     Dates: start: 2014, end: 2014
  2. XENAZINE [Suspect]
     Active Substance: TETRABENAZINE
     Indication: TARDIVE DYSKINESIA
     Route: 048
     Dates: start: 2014, end: 2014
  3. LATUDA [Concomitant]
     Active Substance: LURASIDONE HYDROCHLORIDE
     Indication: PRODUCT USED FOR UNKNOWN INDICATION
  4. XENAZINE [Suspect]
     Active Substance: TETRABENAZINE
     Dosage: ONE TABLET IN THE MORNING AND ONE TABLET IN THE EVENING
     Route: 048
     Dates: start: 2014, end: 2014
  5. XENAZINE [Suspect]
     Active Substance: TETRABENAZINE
     Dosage: TWO TABLETS IN THE MORNING, AND TWO TABLETS IN THE EVENING
     Route: 048
     Dates: start: 20140707

REACTIONS (2)
  - Drug ineffective [Not Recovered/Not Resolved]
  - Intentional product use issue [Not Recovered/Not Resolved]

NARRATIVE: CASE EVENT DATE: 20140708
